FAERS Safety Report 4326341-4 (Version None)
Quarter: 2004Q1

REPORT INFORMATION
  Report Type: 
  Country: None (occurrence: None)
  Receive Date: 20040329
  Receipt Date: 20040329
  Transmission Date: 20041129
  Serious: Yes (Life-Threatening, Hospitalization)
  Sender: FDA-Public Use
  Company Number: None

PATIENT
  Age: 35 Year
  Sex: Female
  Weight: 68.9467 kg

DRUGS (1)
  1. WELLBUTRIN [Suspect]
     Indication: WEIGHT CONTROL
     Dates: start: 19990401, end: 19991031

REACTIONS (2)
  - BIPOLAR I DISORDER [None]
  - SUICIDE ATTEMPT [None]
